FAERS Safety Report 21487615 (Version 1)
Quarter: 2022Q4

REPORT INFORMATION
  Report Type: Report from Study
  Country: KR (occurrence: KR)
  Receive Date: 20221020
  Receipt Date: 20221020
  Transmission Date: 20230112
  Serious: Yes (Hospitalization)
  Sender: FDA-Public Use
  Company Number: KR-NOVARTISPH-NVSC2022KR234593

PATIENT
  Age: 68 Year
  Sex: Female

DRUGS (24)
  1. KISQALI [Suspect]
     Active Substance: RIBOCICLIB
     Indication: Breast cancer metastatic
     Dosage: 600 MG, QD
     Route: 048
     Dates: start: 20220901, end: 20220921
  2. FEMARA [Concomitant]
     Active Substance: LETROZOLE
     Indication: Hormone therapy
     Dosage: 2.5 MG
     Route: 065
     Dates: start: 20220707, end: 20220920
  3. DICAMAX D PLUS [Concomitant]
     Indication: Prophylaxis
     Dosage: 1 DOSAGE FORM (1T)
     Route: 065
     Dates: start: 20220707, end: 20220920
  4. DICAMAX D PLUS [Concomitant]
     Dosage: 1 DOSAGE FORM (1T)
     Route: 065
     Dates: start: 20221007
  5. MEGACE F [Concomitant]
     Indication: Prophylaxis
     Dosage: 625 MG
     Route: 065
     Dates: start: 20220721, end: 20220920
  6. MEGACE F [Concomitant]
     Indication: Asthenia
     Dosage: 1 P
     Route: 065
     Dates: start: 20220922, end: 20221004
  7. VITAMINS [Concomitant]
     Active Substance: VITAMINS
     Indication: Asthenia
     Dosage: 1V
     Route: 065
     Dates: start: 20220921, end: 20220921
  8. LASIX [Concomitant]
     Active Substance: FUROSEMIDE
     Indication: Prophylaxis
     Dosage: 0.5A
     Route: 065
     Dates: start: 20220921, end: 20220921
  9. SK ALBUMIN [Concomitant]
     Indication: Hypoalbuminaemia
     Dosage: 1 B
     Route: 065
     Dates: start: 20220921, end: 20220923
  10. TAZOLACTAM [Concomitant]
     Indication: Pneumonia
     Dosage: 1V
     Route: 065
     Dates: start: 20220921, end: 20220923
  11. PHOSTEN [Concomitant]
     Indication: Hypophosphataemia
     Dosage: 1A
     Route: 065
     Dates: start: 20220921, end: 20221010
  12. BEAROBAN [Concomitant]
     Indication: Dermatitis bullous
     Dosage: 10 G
     Route: 065
     Dates: start: 20220922, end: 20221011
  13. AMINO ACIDS\DEXTROSE\ELECTROLYTES NOS\SOYBEAN OIL\VITAMINS [Concomitant]
     Active Substance: AMINO ACIDS\DEXTROSE\ELECTROLYTES NOS\SOYBEAN OIL\VITAMINS
     Indication: Asthenia
     Dosage: UNK
     Route: 065
     Dates: start: 20220923, end: 20221010
  14. PACETA [Concomitant]
     Indication: Febrile neutropenia
     Dosage: 1 G
     Route: 065
     Dates: start: 20220923, end: 20220923
  15. PACETA [Concomitant]
     Dosage: 1 G
     Route: 065
     Dates: start: 20220925, end: 20220925
  16. TEICOCIN [Concomitant]
     Indication: Pneumonia
     Dosage: 400 MG
     Route: 065
     Dates: start: 20220923, end: 20220928
  17. EDOXABAN TOSYLATE [Concomitant]
     Active Substance: EDOXABAN TOSYLATE
     Indication: Prophylaxis
     Dosage: 30 MG
     Route: 065
     Dates: start: 20220923, end: 20220928
  18. TRAMADOL HYDROCHLORIDE [Concomitant]
     Active Substance: TRAMADOL HYDROCHLORIDE
     Indication: Febrile neutropenia
     Dosage: 100 MG
     Route: 065
     Dates: start: 20220924, end: 20220924
  19. AMBISOME [Concomitant]
     Active Substance: AMPHOTERICIN B
     Indication: Pneumonia
     Dosage: 60 MG
     Route: 065
     Dates: start: 20220926, end: 20220926
  20. IBUPROFEN [Concomitant]
     Active Substance: IBUPROFEN
     Indication: Febrile neutropenia
     Dosage: 200 MG
     Route: 065
     Dates: start: 20220926, end: 20220927
  21. GODEK [Concomitant]
     Indication: Cholangitis
     Dosage: 1 DOSAGE FORM (1C)
     Route: 065
     Dates: start: 20220926
  22. SETOPEN [Concomitant]
     Indication: Febrile neutropenia
     Dosage: 650 MG
     Route: 065
     Dates: start: 20220927, end: 20221010
  23. IPRATROPIUM BROMIDE [Concomitant]
     Active Substance: IPRATROPIUM BROMIDE
     Indication: Product used for unknown indication
     Dosage: 2 ML
     Route: 065
     Dates: start: 20220927, end: 20221010
  24. HARNAL [Concomitant]
     Active Substance: TAMSULOSIN HYDROCHLORIDE
     Indication: Prophylaxis
     Dosage: 1 DOSAGE FORM (1T)
     Route: 065
     Dates: start: 20221007

REACTIONS (2)
  - Pulmonary embolism [Recovering/Resolving]
  - Cystitis [Unknown]

NARRATIVE: CASE EVENT DATE: 20220921
